FAERS Safety Report 23824294 (Version 1)
Quarter: 2024Q2

REPORT INFORMATION
  Report Type: Spontaneous
  Country: CA (occurrence: None)
  Receive Date: 20240507
  Receipt Date: 20240507
  Transmission Date: 20240716
  Serious: Yes (Hospitalization)
  Sender: FDA-Public Use
  Company Number: CA-ROCHE-3555913

PATIENT
  Age: 84 Year
  Sex: Female
  Weight: 56 kg

DRUGS (9)
  1. RITUXAN [Suspect]
     Active Substance: RITUXIMAB
     Indication: Product used for unknown indication
     Route: 058
  2. CYCLOPHOSPHAMIDE [Concomitant]
     Active Substance: CYCLOPHOSPHAMIDE
  3. ETOPOSIDE [Concomitant]
     Active Substance: ETOPOSIDE
  4. FOLIC ACID [Concomitant]
     Active Substance: FOLIC ACID
  5. GLICLAZIDE [Concomitant]
     Active Substance: GLICLAZIDE
  6. PERCOCET [Concomitant]
     Active Substance: ACETAMINOPHEN\OXYCODONE HYDROCHLORIDE
  7. RABEPRAZOLE [Concomitant]
     Active Substance: RABEPRAZOLE
  8. SITAGLIPTIN [Concomitant]
     Active Substance: SITAGLIPTIN
  9. VINCRISTINE SULFATE [Concomitant]
     Active Substance: VINCRISTINE SULFATE

REACTIONS (4)
  - Asthenia [Recovered/Resolved]
  - Chills [Recovered/Resolved]
  - Febrile neutropenia [Recovered/Resolved]
  - Hyperglycaemia [Recovered/Resolved]
